FAERS Safety Report 13175340 (Version 1)
Quarter: 2017Q1

REPORT INFORMATION
  Report Type: Spontaneous
  Country: US (occurrence: US)
  Receive Date: 20170131
  Receipt Date: 20170131
  Transmission Date: 20170428
  Serious: No
  Sender: FDA-Public Use
  Company Number: None

PATIENT
  Age: 55 Year
  Sex: Male

DRUGS (1)
  1. SUTENT [Suspect]
     Active Substance: SUNITINIB MALATE
     Indication: RENAL CANCER

REACTIONS (8)
  - Dizziness [None]
  - Chromaturia [None]
  - Anxiety [None]
  - Alopecia [None]
  - Scab [None]
  - Pyrexia [None]
  - Muscle spasms [None]
  - Thinking abnormal [None]

NARRATIVE: CASE EVENT DATE: 20170131
